FAERS Safety Report 13701499 (Version 1)
Quarter: 2017Q2

REPORT INFORMATION
  Report Type: Spontaneous
  Country: US (occurrence: US)
  Receive Date: 20170628
  Receipt Date: 20170628
  Transmission Date: 20170830
  Serious: Yes (Hospitalization)
  Sender: FDA-Public Use
  Company Number: None

PATIENT
  Age: 71 Year
  Sex: Male
  Weight: 103.5 kg

DRUGS (22)
  1. MYRBETRIQ [Concomitant]
     Active Substance: MIRABEGRON
  2. FENOFIBRATE. [Concomitant]
     Active Substance: FENOFIBRATE
  3. CENTRUM SILVER [Concomitant]
     Active Substance: MINERALS\VITAMINS
  4. GABAPENTIN. [Concomitant]
     Active Substance: GABAPENTIN
  5. STOOL SOFTENER (DOCUSATE) [Concomitant]
     Active Substance: DOCUSATE
  6. VESICARE [Concomitant]
     Active Substance: SOLIFENACIN SUCCINATE
  7. MEROPENEM. [Concomitant]
     Active Substance: MEROPENEM
  8. PROLIA [Suspect]
     Active Substance: DENOSUMAB
     Indication: OSTEOPOROSIS
     Dosage: OTHER DOSE:MG;OTHER FREQUENCY:EVERY 6 MONTHS;?
     Route: 058
     Dates: start: 20161221
  9. ASPIRIN. [Concomitant]
     Active Substance: ASPIRIN
  10. CLONIDINE. [Concomitant]
     Active Substance: CLONIDINE
  11. SINGULAIR [Concomitant]
     Active Substance: MONTELUKAST SODIUM
  12. METFORMIN [Concomitant]
     Active Substance: METFORMIN HYDROCHLORIDE
  13. LOVASTATIN. [Concomitant]
     Active Substance: LOVASTATIN
  14. VANCOMYCIN [Concomitant]
     Active Substance: VANCOMYCIN
  15. APIDRA SOLOSTAR [Concomitant]
     Active Substance: INSULIN GLULISINE
  16. OMEPRAZOLE. [Concomitant]
     Active Substance: OMEPRAZOLE
  17. TIZANIDINE. [Concomitant]
     Active Substance: TIZANIDINE
  18. HUMALOG [Concomitant]
     Active Substance: INSULIN LISPRO
  19. HYDROCODONE BITARTRATE AND ACETAMINOPHEN [Concomitant]
     Active Substance: ACETAMINOPHEN\HYDROCODONE BITARTRATE
  20. LISINOPRIL. [Concomitant]
     Active Substance: LISINOPRIL
  21. AMLODIPINE [Concomitant]
     Active Substance: AMLODIPINE BESYLATE
  22. MOBIC [Concomitant]
     Active Substance: MELOXICAM

REACTIONS (2)
  - Joint injection [None]
  - Staphylococcal infection [None]

NARRATIVE: CASE EVENT DATE: 20170516
